FAERS Safety Report 17041680 (Version 1)
Quarter: 2019Q4

REPORT INFORMATION
  Report Type: Spontaneous
  Country: DE (occurrence: DE)
  Receive Date: 20191118
  Receipt Date: 20191118
  Transmission Date: 20200122
  Serious: Yes (Life-Threatening, Hospitalization, Other)
  Sender: FDA-Public Use
  Company Number: DE-AUROBINDO-AUR-APL-2019-073070

PATIENT
  Age: 77 Year
  Sex: Male

DRUGS (4)
  1. CLOPIDOGREL [Suspect]
     Active Substance: CLOPIDOGREL BISULFATE
     Indication: CORONARY ARTERIAL STENT INSERTION
     Dosage: 75 MILLIGRAM, ONCE A DAY
     Route: 048
     Dates: start: 201907
  2. NOVALGIN (METAMIZOLE SODIUM) [Suspect]
     Active Substance: METAMIZOLE SODIUM
     Indication: SPINAL PAIN
     Dosage: 2000 MILLIGRAM, ONCE A DAY,(4*500MG)
     Route: 048
     Dates: start: 2019, end: 20191023
  3. RIVAROXABAN [Concomitant]
     Active Substance: RIVAROXABAN
     Indication: ATRIAL FIBRILLATION
     Dosage: UNK
     Route: 065
  4. METHOTREXATE. [Suspect]
     Active Substance: METHOTREXATE
     Indication: PSORIASIS
     Dosage: 20 MILLIGRAM, EVERY WEEK
     Route: 048
     Dates: end: 20191023

REACTIONS (6)
  - Pneumonia [Unknown]
  - Thrombocytopenia [Not Recovered/Not Resolved]
  - Sepsis [Unknown]
  - Anaemia [Unknown]
  - Leukopenia [Not Recovered/Not Resolved]
  - Epistaxis [Unknown]

NARRATIVE: CASE EVENT DATE: 201910
